FAERS Safety Report 23447230 (Version 2)
Quarter: 2024Q1

REPORT INFORMATION
  Report Type: Spontaneous
  Country: FR (occurrence: FR)
  Receive Date: 20240126
  Receipt Date: 20240306
  Transmission Date: 20240410
  Serious: Yes (Other)
  Sender: FDA-Public Use
  Company Number: None

PATIENT
  Age: 42 Year
  Sex: Female

DRUGS (6)
  1. EPIRUBICIN HYDROCHLORIDE [Suspect]
     Active Substance: EPIRUBICIN HYDROCHLORIDE
     Indication: Breast cancer metastatic
     Dosage: 240 MG/M2
     Route: 042
     Dates: start: 20200622, end: 20200824
  2. TRASTUZUMAB [Suspect]
     Active Substance: TRASTUZUMAB
     Indication: Breast cancer metastatic
     Dosage: 1 DF
     Route: 042
     Dates: start: 20200622, end: 20200824
  3. TRASTUZUMAB [Suspect]
     Active Substance: TRASTUZUMAB
     Dosage: 1 DF, EVERY 3 WEEKS
     Route: 042
     Dates: start: 20200914, end: 20201116
  4. TRASTUZUMAB [Suspect]
     Active Substance: TRASTUZUMAB
     Dosage: 1 DF
     Route: 058
     Dates: start: 20201207, end: 20210927
  5. TRASTUZUMAB [Suspect]
     Active Substance: TRASTUZUMAB
     Dosage: 1 DF
     Dates: start: 20230616
  6. PERTUZUMAB [Suspect]
     Active Substance: PERTUZUMAB
     Indication: Breast cancer metastatic
     Dosage: 1 DF, CYCLIC
     Route: 042
     Dates: start: 20230616

REACTIONS (2)
  - Ventricular dysfunction [Recovering/Resolving]
  - Off label use [Unknown]
